FAERS Safety Report 24132542 (Version 1)
Quarter: 2024Q3

REPORT INFORMATION
  Report Type: Spontaneous
  Country: IT (occurrence: IT)
  Receive Date: 20240724
  Receipt Date: 20240724
  Transmission Date: 20241017
  Serious: Yes (Hospitalization)
  Sender: FRESENIUS KABI
  Company Number: IT-JNJFOC-20240720833

PATIENT
  Age: 72 Year
  Sex: Male
  Weight: 70 kg

DRUGS (7)
  1. OXALIPLATIN [Suspect]
     Active Substance: OXALIPLATIN
     Indication: HER2 positive colorectal cancer
     Dosage: 85 MG/M2 EVERY 2 WEEKS ON DAYS 1, 15 AND 29 OF EACH 6-WEEK (42-DAY) CYCLE?FORM OF ADMIN: POWDER FOR
     Route: 042
     Dates: start: 20240523, end: 20240618
  2. TUCATINIB [Suspect]
     Active Substance: TUCATINIB
     Indication: HER2 positive colorectal cancer
     Dosage: FOA: FILM COATED TABLET
     Route: 048
     Dates: start: 20240523, end: 20240623
  3. TRASTUZUMAB [Suspect]
     Active Substance: TRASTUZUMAB
     Indication: HER2 positive colorectal cancer
     Dosage: 8 MG/KG ON DAY 1 OF EVERY 3 WEEKS (Q3W) (SINGLE LOADING DOSE 8 MG/KG IV ON C1 D1)?FOA: POWDER FOR SO
     Route: 042
     Dates: start: 20240523, end: 20240523
  4. LEVOLEUCOVORIN CALCIUM PENTAHYDRATE [Suspect]
     Active Substance: LEVOLEUCOVORIN CALCIUM PENTAHYDRATE
     Indication: HER2 positive colorectal cancer
     Dosage: 200 MG/M2 EVERY 2 WEEKS ON DAYS 1, 15 AND 29 OF EACH 6-WEEK CYCLE?FOA: POWDER FOR SOLUTION FOR INFUS
     Route: 042
     Dates: start: 20240523, end: 20240618
  5. FLUOROURACIL [Suspect]
     Active Substance: FLUOROURACIL
     Indication: HER2 positive colorectal cancer
     Dosage: 400 MG/M2 IV BOLUS, THEN 2400 MG/M2 (IV OVER 46-48 HOURS) EVERY 2 WEEKS ON DAYS 1, 15 AND 29 OF EACH
     Route: 042
     Dates: start: 20240523, end: 20240618
  6. LOPERAMIDE HYDROCHLORIDE [Suspect]
     Active Substance: LOPERAMIDE HYDROCHLORIDE
     Indication: HER2 positive colorectal cancer
     Dosage: 4 MG THREE TIMES DAILY (DAYS 1 TO 14) FOLLOWED BY 4 MG TWICE DAILY (DAY 15 THROUGH DAY 42) LAST DOSA
  7. LOPERAMIDE HYDROCHLORIDE [Suspect]
     Active Substance: LOPERAMIDE HYDROCHLORIDE
     Dosage: 4 MG THREE TIMES DAILY (DAYS 1 TO 14) FOLLOWED BY 4 MG TWICE DAILY (DAY 15 THROUGH DAY 42) LAST DOSA
     Dates: start: 20240523, end: 20240605

REACTIONS (2)
  - Off label use [Unknown]
  - Blood creatinine increased [Not Recovered/Not Resolved]

NARRATIVE: CASE EVENT DATE: 20240523
